FAERS Safety Report 6876854-6 (Version None)
Quarter: 2010Q3

REPORT INFORMATION
  Report Type: 
  Country: None (occurrence: None)
  Receive Date: 20100727
  Receipt Date: 20100714
  Transmission Date: 20110219
  Serious: Yes (Other)
  Sender: FDA-Public Use
  Company Number: ZA-ROCHE-715561

PATIENT
  Age: 18 Year
  Sex: Male
  Weight: 70 kg

DRUGS (2)
  1. ISOTRETINOIN [Suspect]
     Indication: ACNE
     Route: 048
     Dates: start: 20100218
  2. MYPRODOL [Concomitant]
     Dosage: 04 DOSES

REACTIONS (3)
  - APPENDICITIS [None]
  - HAEMORRHOIDS [None]
  - LARGE INTESTINAL ULCER [None]
